FAERS Safety Report 5195952-9 (Version None)
Quarter: 2006Q4

REPORT INFORMATION
  Report Type: 
  Country: None (occurrence: None)
  Receive Date: 20061227
  Receipt Date: 20061227
  Transmission Date: 20070319
  Serious: No
  Sender: FDA-Public Use
  Company Number: None

PATIENT
  Age: 52 Year
  Sex: Female
  Weight: 86.1834 kg

DRUGS (2)
  1. SINEMET [Suspect]
     Indication: RESTLESS LEGS SYNDROME
     Dosage: 2 TABLETS A NIGHT EVERY NIGHT
     Dates: start: 20020510, end: 20061231
  2. SINEMET [Suspect]
     Indication: RESTLESS LEGS SYNDROME
     Dosage: 7 TABLETS A DAY EVERY DAY
     Dates: start: 20020510, end: 20061231

REACTIONS (2)
  - ABNORMAL BEHAVIOUR [None]
  - MALAISE [None]
